FAERS Safety Report 5473372-7 (Version None)
Quarter: 2007Q4

REPORT INFORMATION
  Report Type: 
  Country: None (occurrence: None)
  Receive Date: 20071001
  Receipt Date: 20070925
  Transmission Date: 20080405
  Serious: Yes (Other)
  Sender: FDA-Public Use
  Company Number: US-JNJFOC-20061204409

PATIENT
  Sex: Female
  Weight: 67.59 kg

DRUGS (2)
  1. ORTHO EVRA [Suspect]
     Indication: CONTRACEPTION
     Route: 062
  2. ASTELIN [Concomitant]
     Indication: MULTIPLE ALLERGIES
     Route: 045

REACTIONS (1)
  - CONVULSION [None]
